FAERS Safety Report 10197781 (Version 1)
Quarter: 2014Q2

REPORT INFORMATION
  Report Type: Spontaneous
  Country: US (occurrence: US)
  Receive Date: 20140527
  Receipt Date: 20140527
  Transmission Date: 20141212
  Serious: Yes (Other)
  Sender: FDA-Public Use
  Company Number: US-JNJFOC-20140513249

PATIENT
  Age: 53 Year
  Sex: Male
  Weight: 72.58 kg

DRUGS (4)
  1. ULTRAM [Suspect]
     Indication: BREAKTHROUGH PAIN
     Route: 048
  2. DURAGESIC [Suspect]
     Indication: BACK PAIN
     Route: 062
  3. DURAGESIC [Suspect]
     Indication: BACK PAIN
     Route: 062
  4. OXYCODONE [Suspect]
     Indication: PAIN
     Route: 065

REACTIONS (4)
  - Back injury [Recovered/Resolved]
  - Incorrect dose administered [Unknown]
  - Malaise [Not Recovered/Not Resolved]
  - Drug ineffective [Unknown]
